FAERS Safety Report 25307716 (Version 1)
Quarter: 2025Q2

REPORT INFORMATION
  Report Type: Spontaneous
  Country: FR (occurrence: FR)
  Receive Date: 20250513
  Receipt Date: 20250513
  Transmission Date: 20250717
  Serious: Yes (Other)
  Sender: MYLAN
  Company Number: None

PATIENT
  Age: 21 Year
  Sex: Female

DRUGS (8)
  1. ACETAMINOPHEN [Suspect]
     Active Substance: ACETAMINOPHEN
     Indication: Pyrexia
  2. ACETAMINOPHEN [Suspect]
     Active Substance: ACETAMINOPHEN
     Route: 048
  3. ACETAMINOPHEN [Suspect]
     Active Substance: ACETAMINOPHEN
     Route: 048
  4. ACETAMINOPHEN [Suspect]
     Active Substance: ACETAMINOPHEN
  5. PERFALGAN [Suspect]
     Active Substance: ACETAMINOPHEN
     Indication: Pyrexia
     Dates: start: 20241108
  6. PERFALGAN [Suspect]
     Active Substance: ACETAMINOPHEN
     Route: 042
     Dates: start: 20241108
  7. PERFALGAN [Suspect]
     Active Substance: ACETAMINOPHEN
     Route: 042
     Dates: start: 20241108
  8. PERFALGAN [Suspect]
     Active Substance: ACETAMINOPHEN
     Dates: start: 20241108

REACTIONS (2)
  - Analgesic drug level increased [Recovered/Resolved]
  - Overdose [Recovered/Resolved]

NARRATIVE: CASE EVENT DATE: 20241108
